FAERS Safety Report 14914797 (Version 1)
Quarter: 2018Q2

REPORT INFORMATION
  Report Type: Report from Study
  Country: US (occurrence: US)
  Receive Date: 20180518
  Receipt Date: 20180518
  Transmission Date: 20180711
  Serious: Yes (Other)
  Sender: FDA-Public Use
  Company Number: US-ALEXION PHARMACEUTICALS INC.-A201805774

PATIENT
  Sex: Female

DRUGS (1)
  1. SOLIRIS [Suspect]
     Active Substance: ECULIZUMAB
     Indication: MYASTHENIA GRAVIS
     Route: 065

REACTIONS (6)
  - Weight increased [Unknown]
  - Symptom recurrence [Unknown]
  - Blood pressure increased [Unknown]
  - Tearfulness [Unknown]
  - Eye disorder [Unknown]
  - Major depression [Unknown]
